FAERS Safety Report 5318991-3 (Version None)
Quarter: 2007Q2

REPORT INFORMATION
  Report Type: 
  Country: None (occurrence: None)
  Receive Date: 20070508
  Receipt Date: 20070427
  Transmission Date: 20071010
  Serious: Yes (Hospitalization)
  Sender: FDA-Public Use
  Company Number: GBWYE303502APR07

PATIENT
  Sex: Female

DRUGS (6)
  1. VENLAFAXIINE HCL [Suspect]
     Indication: DEPRESSION
     Dosage: 225 MG DAILY
     Route: 048
     Dates: start: 20010101, end: 20060816
  2. VENLAFAXIINE HCL [Suspect]
     Dosage: 262.5 MG DAILY
     Route: 048
     Dates: start: 20060817, end: 20061120
  3. VENLAFAXIINE HCL [Suspect]
     Dosage: 300 MG DAILY
     Route: 048
     Dates: start: 20061121, end: 20070122
  4. VENLAFAXIINE HCL [Suspect]
     Dosage: UNKNOWN
     Dates: start: 20070123, end: 20070201
  5. OLANZAPINE [Concomitant]
     Indication: AGITATION
     Dosage: 5 MG MORNING AND 10 MG EVENING
     Route: 048
     Dates: start: 20010101
  6. OLANZAPINE [Concomitant]
     Indication: ANXIETY

REACTIONS (4)
  - CONDITION AGGRAVATED [None]
  - DEPRESSION [None]
  - DRUG EFFECT DECREASED [None]
  - PANCREATITIS NECROTISING [None]
